FAERS Safety Report 4506695-6 (Version None)
Quarter: 2004Q4

REPORT INFORMATION
  Report Type: 
  Country: None (occurrence: None)
  Receive Date: 20041122
  Receipt Date: 20040820
  Transmission Date: 20050328
  Serious: Yes (Death, Hospitalization)
  Sender: FDA-Public Use
  Company Number: US-MERCK-0408USA01675

PATIENT
  Age: 37 Year
  Sex: Male
  Weight: 91 kg

DRUGS (12)
  1. VIOXX [Suspect]
     Indication: BACK PAIN
     Route: 048
     Dates: start: 20020522, end: 20020901
  2. VIOXX [Suspect]
     Route: 048
     Dates: start: 20020522, end: 20020901
  3. OXYCONTIN [Concomitant]
     Indication: ANALGESIC EFFECT
     Route: 065
     Dates: start: 20001204, end: 20020901
  4. ENDOCET [Concomitant]
     Indication: ANALGESIC EFFECT
     Route: 065
  5. PERCOCET [Concomitant]
     Indication: ANALGESIC EFFECT
     Route: 065
     Dates: end: 20020823
  6. NITROQUICK [Concomitant]
     Route: 065
  7. NEURONTIN [Concomitant]
     Indication: PAIN MANAGEMENT
     Route: 065
  8. TOPAMAX [Concomitant]
     Route: 065
  9. DURAGESIC [Concomitant]
     Indication: ANALGESIC EFFECT
     Route: 065
  10. AMITRIPTYLIN [Concomitant]
     Indication: DEPRESSION
     Route: 065
  11. NORVASC [Concomitant]
     Route: 065
  12. EFFEXOR [Concomitant]
     Route: 065

REACTIONS (6)
  - ARTERIOSCLEROSIS [None]
  - BACK PAIN [None]
  - CARDIAC ARREST [None]
  - COMA [None]
  - MYOCARDIAL INFARCTION [None]
  - PAIN IN EXTREMITY [None]
